FAERS Safety Report 5508903-1 (Version None)
Quarter: 2007Q4

REPORT INFORMATION
  Report Type: 
  Country: None (occurrence: None)
  Receive Date: 20071026
  Receipt Date: 20070705
  Transmission Date: 20080405
  Serious: No
  Sender: FDA-Public Use
  Company Number: 2007US001764

PATIENT
  Sex: Female

DRUGS (3)
  1. VAPRISOL [Suspect]
     Dosage: 20 MG, IV BOLUS
     Route: 040
  2. VAPRISOL [Suspect]
     Dosage: 20 MG, IV DRIP
     Route: 041
  3. DEMECLOCYCLINE HCL [Concomitant]

REACTIONS (1)
  - BLOOD SODIUM INCREASED [None]
